FAERS Safety Report 23622950 (Version 1)
Quarter: 2024Q1

REPORT INFORMATION
  Report Type: Spontaneous
  Country: US (occurrence: None)
  Receive Date: 20240312
  Receipt Date: 20240312
  Transmission Date: 20240409
  Serious: No
  Sender: FDA-Public Use
  Company Number: None

PATIENT
  Age: 40 Year
  Sex: Male
  Weight: 58.5 kg

DRUGS (1)
  1. LIPITOR [Suspect]
     Active Substance: ATORVASTATIN CALCIUM
     Indication: Blood cholesterol increased
     Dates: start: 20240301, end: 20240304

REACTIONS (6)
  - Pyrexia [None]
  - Myalgia [None]
  - Pain [None]
  - Feeling abnormal [None]
  - Therapy cessation [None]
  - Arthralgia [None]

NARRATIVE: CASE EVENT DATE: 20240301
